FAERS Safety Report 4696233-X (Version None)
Quarter: 2005Q2

REPORT INFORMATION
  Report Type: 
  Country: None (occurrence: None)
  Receive Date: 20050621
  Receipt Date: 20050609
  Transmission Date: 20051028
  Serious: Yes (Hospitalization)
  Sender: FDA-Public Use
  Company Number: 2005UW09026

PATIENT
  Age: 78 Year
  Sex: Female
  Weight: 43.3 kg

DRUGS (13)
  1. IRESSA [Suspect]
     Indication: BREAST CANCER METASTATIC
     Route: 048
     Dates: start: 20040304
  2. NOLVADEX [Suspect]
     Indication: BREAST CANCER METASTATIC
     Route: 048
     Dates: start: 20040304
  3. CORICIDIN [Concomitant]
     Indication: NASOPHARYNGITIS
     Route: 048
     Dates: start: 20041202, end: 20041219
  4. CORICIDIN [Concomitant]
     Route: 048
     Dates: start: 20050214, end: 20050304
  5. LEVAQUIN [Concomitant]
     Indication: NASOPHARYNGITIS
     Route: 048
     Dates: start: 20041212, end: 20041214
  6. TYLENOL [Concomitant]
     Indication: NASOPHARYNGITIS
     Route: 048
     Dates: start: 20050207, end: 20050213
  7. IMODIUM [Concomitant]
     Indication: DIARRHOEA
     Route: 048
     Dates: start: 20050201
  8. NORMAL SALINE [Concomitant]
     Indication: DEHYDRATION
     Route: 042
     Dates: start: 20050606, end: 20050606
  9. KYTRIL [Concomitant]
     Indication: NAUSEA
     Route: 042
     Dates: start: 20050606, end: 20050606
  10. DECADRON [Concomitant]
     Route: 042
     Dates: start: 20050606, end: 20050606
  11. PROTONIX [Concomitant]
     Indication: GASTROOESOPHAGEAL REFLUX DISEASE
     Route: 042
     Dates: start: 20050606, end: 20050606
  12. ATENOLOL [Concomitant]
     Indication: HYPERTENSION
     Route: 048
     Dates: end: 20050606
  13. ATENOLOL [Concomitant]
     Route: 048
     Dates: start: 20050606

REACTIONS (4)
  - DIARRHOEA [None]
  - FEELING ABNORMAL [None]
  - GASTROINTESTINAL DISORDER [None]
  - RENAL FAILURE ACUTE [None]
